FAERS Safety Report 21988918 (Version 2)
Quarter: 2023Q1

REPORT INFORMATION
  Report Type: Spontaneous
  Country: US (occurrence: US)
  Receive Date: 20230214
  Receipt Date: 20230215
  Transmission Date: 20230418
  Serious: No
  Sender: FDA-Public Use
  Company Number: US-AUROBINDO-AUR-APL-2022-019983

PATIENT

DRUGS (1)
  1. FONDAPARINUX SODIUM [Suspect]
     Active Substance: FONDAPARINUX SODIUM
     Indication: Pulmonary embolism
     Dosage: UNK
     Route: 065

REACTIONS (3)
  - Device issue [Unknown]
  - Device difficult to use [Unknown]
  - Incorrect dose administered by device [Unknown]
